FAERS Safety Report 21390445 (Version 1)
Quarter: 2022Q3

REPORT INFORMATION
  Report Type: Spontaneous
  Country: DE (occurrence: DE)
  Receive Date: 20220929
  Receipt Date: 20220929
  Transmission Date: 20221027
  Serious: Yes (Hospitalization, Other)
  Sender: FDA-Public Use
  Company Number: DE-ADRED-08281-01

PATIENT
  Age: 69 Year
  Sex: Male

DRUGS (9)
  1. ENOXAPARIN SODIUM [Suspect]
     Active Substance: ENOXAPARIN SODIUM
     Dosage: 40 MG, 0-0-1-0, PRE-FILLED SYRINGES
     Route: 058
  2. ASPIRIN [Suspect]
     Active Substance: ASPIRIN
     Dosage: 100 MG, 0-1-0-0, TABLETS
     Route: 048
  3. POTASSIUM IODIDE [Concomitant]
     Active Substance: POTASSIUM IODIDE
     Dosage: 0.131 MG, 1-0-0-0, TABLETS
     Route: 048
  4. BISOPROLOL [Concomitant]
     Active Substance: BISOPROLOL
     Dosage: 2.5 MG, 0-0-1-0, TABLETS
     Route: 048
  5. SILYMARINE [Concomitant]
     Dosage: 140 MG, 1-0-0-0, CAPSULES
     Route: 048
  6. TORSEMIDE [Concomitant]
     Active Substance: TORSEMIDE
     Dosage: 5 MG, 0.5-0-0-0, TABLETS
     Route: 048
  7. METAMIZOLE [Concomitant]
     Active Substance: METAMIZOLE
     Dosage: 500 MG, 1-1-0-1, DROPS
     Route: 048
  8. ATORVASTATIN [Concomitant]
     Active Substance: ATORVASTATIN
     Dosage: 40 MG, 0-0-1-0, TABLETS
     Route: 048
  9. CANDESARTAN [Concomitant]
     Active Substance: CANDESARTAN
     Dosage: 4 MG, 0.5-0-0-0, TABLETS
     Route: 048

REACTIONS (5)
  - Urinary retention [Unknown]
  - Pain [Unknown]
  - Hyperhidrosis [Unknown]
  - Nausea [Unknown]
  - Haematuria [Unknown]
